FAERS Safety Report 25520499 (Version 2)
Quarter: 2025Q3

REPORT INFORMATION
  Report Type: Spontaneous
  Country: EU (occurrence: EU)
  Receive Date: 20250704
  Receipt Date: 20250716
  Transmission Date: 20251021
  Serious: Yes (Life-Threatening, Other)
  Sender: PFIZER
  Company Number: EU-ROCHE-10000316641

PATIENT
  Age: 79 Year
  Sex: Male

DRUGS (13)
  1. OXALIPLATIN [Suspect]
     Active Substance: OXALIPLATIN
     Indication: Colorectal cancer metastatic
     Route: 042
     Dates: start: 20220621
  2. OXALIPLATIN [Suspect]
     Active Substance: OXALIPLATIN
     Route: 042
     Dates: start: 20230905
  3. OXALIPLATIN [Suspect]
     Active Substance: OXALIPLATIN
     Route: 042
     Dates: start: 20230926, end: 20230926
  4. CAPECITABINE [Suspect]
     Active Substance: CAPECITABINE
     Indication: Colorectal cancer metastatic
     Dosage: 3300 MG, 1X/DAY, (ON 13SEP2023, LAST TIME DURING THE 22ND CYCLE)
     Dates: start: 20220621, end: 20230913
  5. ATEZOLIZUMAB [Suspect]
     Active Substance: ATEZOLIZUMAB
     Indication: Colorectal cancer metastatic
     Route: 042
     Dates: start: 20220621, end: 20230926
  6. AVASTIN [Suspect]
     Active Substance: BEVACIZUMAB
     Indication: Colorectal cancer metastatic
     Route: 042
     Dates: start: 20220802, end: 20230926
  7. LIPTRUZET [Concomitant]
     Active Substance: ATORVASTATIN CALCIUM\EZETIMIBE
     Indication: Hypertension
     Dosage: 40 MG, 1X/DAY
  8. ENALAPRIL MALEATE\LERCANIDIPINE HYDROCHLORIDE [Concomitant]
     Active Substance: ENALAPRIL MALEATE\LERCANIDIPINE HYDROCHLORIDE
     Indication: Hypertension
     Dosage: 20 MG, 1X/DAY
  9. BROMAZEPAM [Concomitant]
     Active Substance: BROMAZEPAM
     Indication: Anxiety
     Dosage: 6 MG, 1X/DAY
  10. SODIUM ALGINATE\SODIUM BICARBONATE [Concomitant]
     Active Substance: SODIUM ALGINATE\SODIUM BICARBONATE
     Indication: Nausea
  11. CARAFATE [Concomitant]
     Active Substance: SUCRALFATE
  12. CORN OIL, OXIDIZED [Concomitant]
     Active Substance: CORN OIL, OXIDIZED
  13. CETALKONIUM CHLORIDE\CHOLINE SALICYLATE [Concomitant]
     Active Substance: CETALKONIUM CHLORIDE\CHOLINE SALICYLATE

REACTIONS (10)
  - Drug hypersensitivity [Recovered/Resolved]
  - Loss of consciousness [Unknown]
  - Pain in jaw [Unknown]
  - Feeding disorder [Unknown]
  - Pallor [Unknown]
  - Paraesthesia oral [Unknown]
  - Weight decreased [Unknown]
  - Paraesthesia [Unknown]
  - Cough [Unknown]
  - Hyperhidrosis [Unknown]

NARRATIVE: CASE EVENT DATE: 20230926
